FAERS Safety Report 4469995-4 (Version None)
Quarter: 2004Q3

REPORT INFORMATION
  Report Type: 
  Country: None (occurrence: None)
  Receive Date: 20040917
  Receipt Date: 20040729
  Transmission Date: 20050211
  Serious: Yes (Other)
  Sender: FDA-Public Use
  Company Number: 2003120042

PATIENT
  Age: 42 Year
  Sex: Female
  Weight: 51.7101 kg

DRUGS (8)
  1. VFEND [Suspect]
     Indication: FUNGAL INFECTION
     Dosage: 400 MG (200 MG, 2 I 1 D), ORAL
     Route: 048
     Dates: start: 20031106, end: 20031101
  2. ESCITALOPRAM (ESCITALOPRAM) [Concomitant]
  3. ORAL CONTRACEPTIVE NOS (ORAL CONTRACEPTIVE NOS) [Concomitant]
  4. MAGNESIUM (MAGNESIUM) [Concomitant]
  5. MEXILETINE HCL [Concomitant]
  6. ROCEPHIN [Concomitant]
  7. IRON (IRON) [Concomitant]
  8. DEMULEN (ETHINYLESTRADIOL, ETYNODIOL DIACETATE) [Concomitant]

REACTIONS (7)
  - ABASIA [None]
  - ACTIVITIES OF DAILY LIVING IMPAIRED [None]
  - BLINDNESS [None]
  - FEELING ABNORMAL [None]
  - IMPAIRED DRIVING ABILITY [None]
  - VISUAL DISTURBANCE [None]
  - VISUAL FIELD DEFECT [None]
